FAERS Safety Report 8335386-9 (Version None)
Quarter: 2012Q2

REPORT INFORMATION
  Report Type: 
  Country: None (occurrence: None)
  Receive Date: 20120503
  Receipt Date: 20120425
  Transmission Date: 20120825
  Serious: Yes (Death, Hospitalization)
  Sender: FDA-Public Use
  Company Number: GB-MERCK-1204USA04073

PATIENT
  Sex: Female

DRUGS (11)
  1. DECADRON [Suspect]
     Route: 048
  2. CARBOPLATIN [Suspect]
     Indication: BREAST CANCER METASTATIC
     Route: 065
     Dates: start: 20111024
  3. LAPATINIB [Suspect]
     Indication: BREAST CANCER METASTATIC
     Route: 048
     Dates: start: 20110222, end: 20110921
  4. DECADRON PHOSPHATE [Suspect]
     Route: 042
  5. ETOPOSIDE [Suspect]
     Indication: BRAIN CANCER METASTATIC
     Route: 065
     Dates: start: 20111024
  6. DECADRON [Suspect]
     Indication: METASTASES TO CENTRAL NERVOUS SYSTEM
     Route: 048
  7. DECADRON [Suspect]
     Route: 048
  8. DECADRON [Suspect]
     Route: 048
  9. DECADRON [Suspect]
     Route: 048
     Dates: start: 20111003, end: 20111012
  10. CAPECITABINE [Suspect]
     Indication: BREAST CANCER METASTATIC
     Dosage: 2 WEEKS OUT OF EVERY 3
     Route: 048
     Dates: start: 20110222, end: 20110223
  11. CAPECITABINE [Suspect]
     Dosage: 2 WEEKS OUT OF EVERY 3
     Route: 048
     Dates: start: 20110314

REACTIONS (25)
  - DIARRHOEA [None]
  - MOUTH ULCERATION [None]
  - URINARY TRACT DISORDER [None]
  - POLLAKIURIA [None]
  - TOOTH DISORDER [None]
  - DROOLING [None]
  - CONFUSIONAL STATE [None]
  - VOMITING [None]
  - NEUTROPHILIA [None]
  - PYURIA [None]
  - BREAST CANCER METASTATIC [None]
  - FATIGUE [None]
  - FOOD CRAVING [None]
  - TREATMENT NONCOMPLIANCE [None]
  - DYSARTHRIA [None]
  - INGROWING NAIL [None]
  - HEADACHE [None]
  - BALANCE DISORDER [None]
  - AGGRESSION [None]
  - OEDEMA [None]
  - NAIL INFECTION [None]
  - DYSPEPSIA [None]
  - DRUG INEFFECTIVE [None]
  - NAUSEA [None]
  - HYPOAESTHESIA [None]
